FAERS Safety Report 23905967 (Version 1)
Quarter: 2024Q2

REPORT INFORMATION
  Report Type: Spontaneous
  Country: AU (occurrence: AU)
  Receive Date: 20240527
  Receipt Date: 20240527
  Transmission Date: 20240716
  Serious: Yes (Other)
  Sender: FDA-Public Use
  Company Number: None

PATIENT

DRUGS (17)
  1. ADALIMUMAB [Suspect]
     Active Substance: ADALIMUMAB\ISOPROPYL ALCOHOL
     Indication: Pyoderma gangrenosum
     Dosage: UNK
     Route: 065
  2. AZATHIOPRINE [Concomitant]
     Active Substance: AZATHIOPRINE
     Indication: Pyoderma gangrenosum
     Dosage: UNK
     Route: 065
  3. CYCLOSPORINE [Concomitant]
     Active Substance: CYCLOSPORINE
     Indication: Pyoderma gangrenosum
     Dosage: UNK
     Route: 065
  4. CYCLOPHOSPHAMIDE [Concomitant]
     Active Substance: CYCLOPHOSPHAMIDE
     Indication: Product used for unknown indication
     Dosage: UNK
     Route: 065
  5. ETANERCEPT [Concomitant]
     Active Substance: ETANERCEPT
     Indication: Pyoderma gangrenosum
     Dosage: UNK
     Route: 065
  6. Immunoglobulin [Concomitant]
     Indication: Product used for unknown indication
     Dosage: UNK
     Route: 042
  7. INFLIXIMAB [Concomitant]
     Active Substance: INFLIXIMAB
     Indication: Pyoderma gangrenosum
     Dosage: UNK
     Route: 065
  8. LEFLUNOMIDE [Concomitant]
     Active Substance: LEFLUNOMIDE
     Indication: Product used for unknown indication
     Dosage: UNK
     Route: 065
  9. MESALAMINE [Concomitant]
     Active Substance: MESALAMINE
     Indication: Product used for unknown indication
     Dosage: UNK
     Route: 065
  10. METHOTREXATE [Concomitant]
     Active Substance: METHOTREXATE
     Indication: Pyoderma gangrenosum
     Dosage: UNK
     Route: 065
  11. METHYLPREDNISOLONE [Concomitant]
     Active Substance: METHYLPREDNISOLONE
     Indication: Pyoderma gangrenosum
     Dosage: UNK
     Route: 042
  12. MYCOPHENOLATE MOFETIL [Concomitant]
     Active Substance: MYCOPHENOLATE MOFETIL
     Indication: Pyoderma gangrenosum
     Dosage: UNK
     Route: 065
  13. MYCOPHENOLATE SODIUM [Concomitant]
     Active Substance: MYCOPHENOLATE SODIUM
     Indication: Pyoderma gangrenosum
     Dosage: UNK
     Route: 065
  14. PREDNISOLONE [Concomitant]
     Active Substance: PREDNISOLONE
     Indication: Pyoderma gangrenosum
     Dosage: UNK
     Route: 048
  15. SULFASALAZINE [Concomitant]
     Active Substance: SULFASALAZINE
     Indication: Product used for unknown indication
     Dosage: UNK
     Route: 065
  16. TACROLIMUS [Concomitant]
     Active Substance: TACROLIMUS
     Indication: Product used for unknown indication
     Dosage: UNK
     Route: 065
  17. USTEKINUMAB [Concomitant]
     Active Substance: USTEKINUMAB
     Indication: Pyoderma gangrenosum
     Dosage: UNK
     Route: 065

REACTIONS (8)
  - Meningitis aseptic [Unknown]
  - Haemolysis [Unknown]
  - Sepsis [Unknown]
  - Nausea [Recovered/Resolved]
  - Vomiting [Recovered/Resolved]
  - Headache [Unknown]
  - Oedema peripheral [Unknown]
  - Off label use [Unknown]
